FAERS Safety Report 8667502 (Version 3)
Quarter: 2012Q4

REPORT INFORMATION
  Report Type: Report from Study
  Country: FR (occurrence: FR)
  Receive Date: 20120717
  Receipt Date: 20121015
  Transmission Date: 20130627
  Serious: Yes (Hospitalization)
  Sender: FDA-Public Use
  Company Number: FR-UCBSA-061494

PATIENT
  Age: 63 Year
  Sex: Female
  Weight: 80 kg

DRUGS (5)
  1. CIMZIA [Suspect]
     Indication: RHEUMATOID ARTHRITIS
     Dosage: 400mg every two weeks and then 200mg every two weeks.
     Route: 058
     Dates: start: 20120208, end: 20120307
  2. CIMZIA [Suspect]
     Indication: RHEUMATOID ARTHRITIS
     Dosage: 400mg every two weeks and then 200mg every two weeks.
     Route: 058
     Dates: start: 20120329, end: 20120330
  3. METOJECT [Concomitant]
     Indication: RHEUMATOID ARTHRITIS
     Route: 058
     Dates: start: 201101
  4. CORTANCYL [Concomitant]
     Indication: RHEUMATOID ARTHRITIS
     Dosage: 5MG DAILY
     Route: 048
     Dates: start: 200806
  5. OFLOCET [Concomitant]
     Indication: SINUSITIS
     Dates: start: 20120301, end: 20120307

REACTIONS (3)
  - Colitis [Recovered/Resolved]
  - Cholelithiasis [Recovered/Resolved]
  - Sinusitis [Recovered/Resolved]
